FAERS Safety Report 7866870-X (Version None)
Quarter: 2011Q4

REPORT INFORMATION
  Report Type: 
  Country: None (occurrence: None)
  Receive Date: 20111028
  Receipt Date: 20111025
  Transmission Date: 20120403
  Serious: Yes (Disabling)
  Sender: FDA-Public Use
  Company Number: US-ROCHE-1003767

PATIENT
  Sex: Female
  Weight: 64.014 kg

DRUGS (3)
  1. CARBOPLATIN [Concomitant]
  2. AVASTIN [Suspect]
     Indication: OVARIAN CANCER
     Route: 042
     Dates: start: 20101123, end: 20110920
  3. TAXOL [Concomitant]

REACTIONS (1)
  - INFARCTION [None]
